FAERS Safety Report 5628225-8 (Version None)
Quarter: 2008Q1

REPORT INFORMATION
  Report Type: 
  Country: None (occurrence: None)
  Receive Date: 20080131
  Receipt Date: 20071128
  Transmission Date: 20080703
  Serious: No
  Sender: FDA-Public Use
  Company Number: 163-21880-07111374

PATIENT
  Age: 73 Year
  Sex: Female

DRUGS (3)
  1. REVLIMID [Suspect]
     Indication: MULTIPLE MYELOMA
     Dosage: 25 MG, DAILY X 21 DAYS, ORAL
     Route: 048
     Dates: start: 20071026, end: 20071101
  2. DEXAMETHASONE TAB [Concomitant]
  3. COUMADIN [Concomitant]

REACTIONS (10)
  - ARTHRALGIA [None]
  - DIZZINESS [None]
  - EYE SWELLING [None]
  - HEADACHE [None]
  - HYPERSENSITIVITY [None]
  - MUSCULAR WEAKNESS [None]
  - MYDRIASIS [None]
  - PAIN OF SKIN [None]
  - PARAESTHESIA [None]
  - PRURITUS [None]
